FAERS Safety Report 22369091 (Version 5)
Quarter: 2025Q2

REPORT INFORMATION
  Report Type: Report from Study
  Country: CA (occurrence: CA)
  Receive Date: 20230525
  Receipt Date: 20250507
  Transmission Date: 20250717
  Serious: Yes (Other)
  Sender: JOHNSON AND JOHNSON
  Company Number: CA-JNJFOC-20230546678

PATIENT
  Age: 11 Year
  Sex: Female

DRUGS (3)
  1. REMICADE [Suspect]
     Active Substance: INFLIXIMAB
     Indication: Colitis ulcerative
     Route: 041
     Dates: start: 20220903
  2. REMICADE [Suspect]
     Active Substance: INFLIXIMAB
     Dosage: DOSE INCREASED
     Route: 041
  3. REMICADE [Suspect]
     Active Substance: INFLIXIMAB
     Dosage: DOSE INCREASED
     Route: 041
     Dates: start: 20220903, end: 20241005

REACTIONS (7)
  - Pneumonia [Recovered/Resolved]
  - Seizure [Recovering/Resolving]
  - Frequent bowel movements [Recovering/Resolving]
  - General physical health deterioration [Recovering/Resolving]
  - Abdominal discomfort [Unknown]
  - Therapeutic product effect decreased [Unknown]
  - Psoriasis [Unknown]

NARRATIVE: CASE EVENT DATE: 20230521
